FAERS Safety Report 6447787-4 (Version None)
Quarter: 2009Q4

REPORT INFORMATION
  Report Type: 
  Country: None (occurrence: None)
  Receive Date: 20091120
  Receipt Date: 20091117
  Transmission Date: 20100525
  Serious: Yes (Life-Threatening, Hospitalization)
  Sender: FDA-Public Use
  Company Number: FR-TEVA-215533ISR

PATIENT
  Sex: Male

DRUGS (7)
  1. DOXORUBICIN HCL [Suspect]
     Route: 042
     Dates: start: 20090212
  2. CYCLOPHOSPHAMIDE [Suspect]
     Route: 042
     Dates: start: 20090212
  3. VINCRISTINE [Suspect]
     Route: 042
     Dates: start: 20090212
  4. PREDNISONE [Suspect]
     Route: 042
     Dates: start: 20090211, end: 20090216
  5. METHOTREXATE [Suspect]
     Route: 042
     Dates: start: 20090211, end: 20090330
  6. NEUPOGEN [Suspect]
     Indication: DRUG USE FOR UNKNOWN INDICATION
  7. RITUXIMAB [Suspect]
     Route: 042
     Dates: start: 20090211, end: 20090330

REACTIONS (5)
  - DIARRHOEA [None]
  - DYSPNOEA [None]
  - INTERSTITIAL LUNG DISEASE [None]
  - LUNG DISORDER [None]
  - OXYGEN SATURATION DECREASED [None]
